FAERS Safety Report 8415156-3 (Version None)
Quarter: 2012Q2

REPORT INFORMATION
  Report Type: 
  Country: None (occurrence: None)
  Receive Date: 20120606
  Receipt Date: 20120531
  Transmission Date: 20120825
  Serious: No
  Sender: FDA-Public Use
  Company Number: US-PFIZER INC-2012131354

PATIENT

DRUGS (4)
  1. PENICILLIN G POTASSIUM [Suspect]
     Dosage: UNK
  2. AMITRIPTYLINE HCL [Suspect]
     Dosage: UNK
  3. VICODIN [Suspect]
     Dosage: UNK
  4. CYCLOBENZAPRINE [Suspect]
     Dosage: UNK

REACTIONS (2)
  - DRY MOUTH [None]
  - DRUG HYPERSENSITIVITY [None]
